FAERS Safety Report 8782129 (Version 2)
Quarter: 2012Q4

REPORT INFORMATION
  Report Type: 
  Country: DE (occurrence: DE)
  Receive Date: 20120913
  Receipt Date: 20120913
  Transmission Date: 20130627
  Serious: Yes (Other)
  Sender: FDA-Public Use
  Company Number: DE-SHIRE-ALL1-2012-03653

PATIENT
  Age: 61 Year
  Sex: Male
  Weight: 70 kg

DRUGS (6)
  1. XAGRID [Suspect]
     Indication: ESSENTIAL THROMBOCYTHAEMIA
     Dosage: UNK, Unknown
     Route: 048
     Dates: start: 20120208, end: 20120812
  2. PENTALONG [Concomitant]
     Indication: ANGINA PECTORIS
     Dosage: 50 mg, 2x/day:bid
     Route: 065
     Dates: start: 2010
  3. ALLOPURINOL [Concomitant]
     Indication: BLOOD URIC ACID INCREASED
     Dosage: 300 mg, 1x/day:qd
     Route: 065
     Dates: start: 2010
  4. ASS [Concomitant]
     Indication: ESSENTIAL THROMBOCYTHAEMIA
     Dosage: 100 mg, 1x/day:qd
     Route: 065
     Dates: start: 2010
  5. SIMVASTATIN [Concomitant]
     Indication: CORONARY ARTERY DISEASE
     Dosage: 40 mg, 1x/day:qd
     Route: 065
     Dates: start: 2012
  6. METROGEL [Concomitant]
     Indication: ROSACEA
     Dosage: 0.75 %, 2x/day:bid
     Route: 065
     Dates: start: 2012

REACTIONS (1)
  - Skin ulcer [Not Recovered/Not Resolved]
